FAERS Safety Report 4320319-2 (Version None)
Quarter: 2004Q1

REPORT INFORMATION
  Report Type: 
  Country: None (occurrence: None)
  Receive Date: 20040317
  Receipt Date: 20040305
  Transmission Date: 20041129
  Serious: Yes (Death)
  Sender: FDA-Public Use
  Company Number: GB-JNJFOC-20031105519

PATIENT
  Age: 95 Year
  Sex: Female

DRUGS (2)
  1. RISPERDAL [Suspect]
     Indication: ANXIETY
     Dosage: 1 MG/ML, 2 IN 1 DAY, ORAL; 2 IN 1 DAY, ORAL
     Route: 048
  2. CYLIMORPH (INJECTION), CYCLIMORPH     BURROUGHS [Concomitant]

REACTIONS (1)
  - DEATH [None]
